FAERS Safety Report 10230172 (Version 2)
Quarter: 2014Q2

REPORT INFORMATION
  Report Type: Spontaneous
  Country: CH (occurrence: None)
  Receive Date: 20140609
  Receipt Date: 20140613
  Transmission Date: 20141212
  Serious: Yes (Other)
  Sender: FDA-Public Use
  Company Number: 2014CH003332

PATIENT
  Age: 84 Year
  Sex: Female

DRUGS (4)
  1. ICLUSIG (PONATINIB) TABLET [Suspect]
     Indication: CHRONIC MYELOID LEUKAEMIA
     Route: 048
     Dates: start: 2013, end: 20131105
  2. ASPIRINE (ACETYLSALICYLIC ACID) [Concomitant]
  3. TORASEMIDE (TORASEMIDE) [Concomitant]
  4. FELODIPINE (FELODIPINE) [Concomitant]

REACTIONS (7)
  - Venous stenosis [None]
  - Arterial stenosis [None]
  - Pain in extremity [None]
  - Intermittent claudication [None]
  - Peripheral arterial occlusive disease [None]
  - Peripheral arterial occlusive disease [None]
  - Femoral artery occlusion [None]
